FAERS Safety Report 6006286-4 (Version None)
Quarter: 2008Q4

REPORT INFORMATION
  Report Type: 
  Country: None (occurrence: None)
  Receive Date: 20081216
  Receipt Date: 20081216
  Transmission Date: 20090506
  Serious: Yes (Other)
  Sender: FDA-Public Use
  Company Number: None

PATIENT
  Age: 67 Year
  Sex: Male
  Weight: 121.1104 kg

DRUGS (1)
  1. VENLAFAXINE HCL EXTENDED-RELEASE [Suspect]
     Indication: NERVOUS SYSTEM DISORDER
     Dosage: 1 BID PO
     Route: 048
     Dates: start: 20070101, end: 20081122

REACTIONS (3)
  - CONVULSION [None]
  - TREMOR [None]
  - UNRESPONSIVE TO STIMULI [None]
